FAERS Safety Report 10068944 (Version 1)
Quarter: 2014Q2

REPORT INFORMATION
  Report Type: Spontaneous
  Country: FR (occurrence: FR)
  Receive Date: 20140409
  Receipt Date: 20140409
  Transmission Date: 20141212
  Serious: Yes (Death)
  Sender: FDA-Public Use
  Company Number: FR-BRISTOL-MYERS SQUIBB COMPANY-20579868

PATIENT
  Age: 83 Year
  Sex: Male

DRUGS (7)
  1. COUMADINE [Suspect]
     Route: 048
     Dates: start: 201302, end: 20131211
  2. AMOXICILLIN [Interacting]
     Route: 048
     Dates: start: 20131207, end: 20131211
  3. KARDEGIC [Suspect]
     Dosage: POWDER FOR ORAL SOLUTION IN SACHET
     Route: 048
     Dates: start: 201312, end: 20131211
  4. PERINDOPRIL [Concomitant]
     Dates: start: 2012
  5. AMIODARONE [Concomitant]
     Dates: start: 201302
  6. AMLODIPINE [Concomitant]
     Dates: start: 201311
  7. FUROSEMIDE [Concomitant]

REACTIONS (5)
  - International normalised ratio increased [Fatal]
  - Pericardial haemorrhage [Fatal]
  - Drug interaction [Fatal]
  - Overdose [Fatal]
  - Septic shock [Fatal]
